FAERS Safety Report 6573457-8 (Version None)
Quarter: 2010Q1

REPORT INFORMATION
  Report Type: 
  Country: None (occurrence: None)
  Receive Date: 20100208
  Receipt Date: 20100203
  Transmission Date: 20100710
  Serious: Yes (Death)
  Sender: FDA-Public Use
  Company Number: JP-ELI_LILLY_AND_COMPANY-JP200905003615

PATIENT
  Sex: Male
  Weight: 52.7 kg

DRUGS (30)
  1. ALIMTA [Suspect]
     Indication: PLEURAL MESOTHELIOMA MALIGNANT
     Dosage: 750 MG, OTHER
     Route: 042
     Dates: start: 20090330, end: 20090330
  2. CISPLATIN [Concomitant]
     Indication: PLEURAL MESOTHELIOMA MALIGNANT
     Dosage: 90 MG, OTHER
     Route: 042
     Dates: start: 20090330, end: 20090330
  3. PANVITAN [Concomitant]
     Dosage: 1 G, DAILY (1/D)
     Route: 048
     Dates: start: 20090323, end: 20090405
  4. PANVITAN [Concomitant]
     Dosage: 1 G, DAILY (1/D)
     Route: 048
     Dates: start: 20090410, end: 20090423
  5. METHYCOBAL [Concomitant]
     Dosage: 1 MG, OTHER
     Route: 030
     Dates: start: 20090323, end: 20090323
  6. DECADRON [Concomitant]
     Dosage: 12 MG, DAILY (1/D)
     Route: 042
     Dates: end: 20090404
  7. LAXOBERON [Concomitant]
     Indication: CONSTIPATION
     Dosage: UNK, AS NEEDED
  8. MAGMITT [Concomitant]
     Dosage: 330 MG, 3/D
     Route: 048
  9. MAGMITT [Concomitant]
     Dosage: 250 MG, 3/D
     Route: 048
  10. PURSENNID [Concomitant]
     Dosage: 12 MG, DAILY (1/D)
     Route: 048
  11. VEEN 3G [Concomitant]
     Dosage: 500 ML, DAILY (1/D)
     Route: 042
  12. VEEN 3G [Concomitant]
     Dosage: 500 ML, 2/D
     Route: 042
  13. TAKEPRON [Concomitant]
     Dosage: 30 MG, OTHER
     Route: 048
  14. ITOROL [Concomitant]
     Indication: ANGINA PECTORIS
     Dosage: 20 MG, 2/D
     Route: 048
  15. ASPIRIN [Concomitant]
     Dosage: 100 MG, DAILY (1/D)
     Route: 048
  16. NITROPEN [Concomitant]
     Dosage: 0.3 MG, AS NEEDED
     Route: 048
  17. CERCINE [Concomitant]
     Dosage: 5 MG, DAILY (1/D)
     Route: 048
  18. CRAVIT [Concomitant]
     Dosage: 200 MG, DAILY (1/D)
     Route: 048
  19. BIOFERMIN R [Concomitant]
     Dosage: 6 MG, 3/D
     Route: 048
  20. LOXONIN [Concomitant]
     Dosage: 60 MG, 3/D
     Route: 048
  21. MUCOSTA [Concomitant]
     Dosage: 100 MG, 3/D
     Route: 048
  22. ZANTAC [Concomitant]
     Dosage: 150 MG, DAILY (1/D)
     Route: 048
  23. AMLODINE [Concomitant]
     Dosage: 5 MG, DAILY (1/D)
     Route: 048
  24. PYRINAZIN [Concomitant]
     Indication: PAIN
     Dosage: 0.5 G, AS NEEDED
     Route: 048
  25. DUROTEP [Concomitant]
     Dosage: 1 D/F, TRIDAILY
  26. OPSO [Concomitant]
     Indication: PAIN
     Dosage: UNK, AS NEEDED
  27. OXYCONTIN [Concomitant]
     Dosage: 5 MG, 2/D
     Route: 048
  28. OXYCONTIN [Concomitant]
     Dosage: 10 MG, 2/D
     Route: 048
  29. TOLOPELON [Concomitant]
     Dosage: 1 MG, DAILY (1/D)
     Route: 048
  30. RHYTHMY [Concomitant]
     Dosage: 1 D/F, DAILY (1/D)
     Route: 048
     Dates: start: 20090502, end: 20090503

REACTIONS (1)
  - INTERSTITIAL LUNG DISEASE [None]
